FAERS Safety Report 12348710 (Version 2)
Quarter: 2016Q2

REPORT INFORMATION
  Report Type: Spontaneous
  Country: US (occurrence: US)
  Receive Date: 20160509
  Receipt Date: 20160622
  Transmission Date: 20160815
  Serious: No
  Sender: FDA-Public Use
  Company Number: US-009507513-1605USA003713

PATIENT
  Sex: Female

DRUGS (1)
  1. ENTEREG [Suspect]
     Active Substance: ALVIMOPAN
     Indication: INTESTINAL RESECTION
     Route: 048

REACTIONS (2)
  - Wrong technique in product usage process [Unknown]
  - Dysphagia [Recovered/Resolved]
